FAERS Safety Report 24730845 (Version 1)
Quarter: 2024Q4

REPORT INFORMATION
  Report Type: Report from Study
  Country: US (occurrence: US)
  Receive Date: 20241213
  Receipt Date: 20241213
  Transmission Date: 20250115
  Serious: Yes (Hospitalization)
  Sender: BOEHRINGER INGELHEIM
  Company Number: US-BoehringerIngelheim-2024-BI-035187

PATIENT
  Age: 88 Year
  Sex: Female

DRUGS (1)
  1. OFEV [Suspect]
     Active Substance: NINTEDANIB
     Indication: Interstitial lung disease
     Route: 048

REACTIONS (7)
  - Hepatic haemorrhage [Not Recovered/Not Resolved]
  - Urticaria [Unknown]
  - Urinary tract infection [Not Recovered/Not Resolved]
  - Abdominal pain upper [Not Recovered/Not Resolved]
  - Nausea [Not Recovered/Not Resolved]
  - Arthritis [Recovered/Resolved]
  - Joint lock [Unknown]

NARRATIVE: CASE EVENT DATE: 20240701
